FAERS Safety Report 11988293 (Version 2)
Quarter: 2016Q3

REPORT INFORMATION
  Report Type: Spontaneous
  Country: US (occurrence: US)
  Receive Date: 20160202
  Receipt Date: 20160808
  Transmission Date: 20161109
  Serious: Yes (Hospitalization, Other)
  Sender: FDA-Public Use
  Company Number: US-TAKEDA-2016MPI000516

PATIENT
  Age: 73 Year
  Sex: Female
  Weight: 105.2 kg

DRUGS (62)
  1. VELCADE [Suspect]
     Active Substance: BORTEZOMIB
     Dosage: 2.1 MG, UNK
     Route: 058
     Dates: start: 20150910, end: 20151008
  2. VELCADE [Suspect]
     Active Substance: BORTEZOMIB
     Dosage: 2.15 MG, UNK
     Route: 058
     Dates: start: 20151022, end: 20151119
  3. VANCOMYCIN [Concomitant]
     Active Substance: VANCOMYCIN
     Indication: INFECTION
     Dosage: 125 MG, QID
     Route: 048
     Dates: start: 20150711, end: 20150725
  4. ZYRTEC [Concomitant]
     Active Substance: CETIRIZINE HYDROCHLORIDE
     Indication: RHINORRHOEA
     Dosage: 10 MG, UNK
     Route: 048
  5. NORMAL SALINE [Concomitant]
     Active Substance: SODIUM CHLORIDE
     Indication: CLOSTRIDIUM DIFFICILE INFECTION
     Dosage: 500 IU, UNK
     Route: 042
     Dates: start: 20150807
  6. ACETAMINOPHEN. [Concomitant]
     Active Substance: ACETAMINOPHEN
     Indication: PREMEDICATION
     Dosage: 650 MG, UNK
     Route: 048
     Dates: start: 20150809
  7. VELCADE [Suspect]
     Active Substance: BORTEZOMIB
     Dosage: 1.5 MG, UNK
     Route: 058
     Dates: start: 20160503, end: 20160602
  8. PREDNISONE. [Suspect]
     Active Substance: PREDNISONE
     Dosage: 100 MG, UNK
     Route: 048
     Dates: start: 20150910, end: 20150913
  9. PREDNISONE. [Suspect]
     Active Substance: PREDNISONE
     Dosage: 100 MG, UNK
     Route: 048
     Dates: start: 20160507, end: 201605
  10. MELPHALAN [Suspect]
     Active Substance: MELPHALAN
     Dosage: 10 MG, UNK
     Route: 048
     Dates: start: 20160303, end: 20160306
  11. VANCOMYCIN [Concomitant]
     Active Substance: VANCOMYCIN
     Dosage: 250 MG, QID
     Route: 048
     Dates: start: 20150814, end: 20150911
  12. WARFARIN [Concomitant]
     Active Substance: WARFARIN
     Indication: THROMBOSIS PROPHYLAXIS
     Dosage: 5 MG, UNK
     Route: 048
     Dates: start: 20150808, end: 20150810
  13. METOPROLOL. [Concomitant]
     Active Substance: METOPROLOL
     Indication: HYPERTENSION
     Dosage: 150 MG, BID
     Route: 048
     Dates: start: 2011
  14. ONDANSETRON [Concomitant]
     Active Substance: ONDANSETRON
     Indication: PROPHYLAXIS OF NAUSEA AND VOMITING
     Dosage: 8 MG, UNK
     Route: 048
     Dates: start: 20150708, end: 20150812
  15. CHLORMADINONE [Concomitant]
     Active Substance: CHLORMADINONE
     Indication: WEIGHT DECREASED
     Dosage: UNK
     Route: 065
  16. ENOXAPARIN [Concomitant]
     Active Substance: ENOXAPARIN
     Indication: DEEP VEIN THROMBOSIS
     Dosage: 110 MG, BID
     Route: 058
     Dates: start: 20150825
  17. SODIUM CHLORIDE. [Concomitant]
     Active Substance: SODIUM CHLORIDE
     Dosage: 250 ML, UNK
     Route: 042
     Dates: start: 20150811, end: 20150811
  18. FLUTICASONE [Concomitant]
     Active Substance: FLUTICASONE\FLUTICASONE PROPIONATE
     Indication: NASAL DRYNESS
  19. INSULIN [Concomitant]
     Active Substance: INSULIN NOS
     Indication: TYPE 2 DIABETES MELLITUS
     Dosage: UNK
     Route: 058
     Dates: start: 20150811, end: 20150829
  20. MAGNESIUM SULFATE. [Concomitant]
     Active Substance: MAGNESIUM SULFATE
     Dosage: 4 MG, UNK
     Route: 048
     Dates: start: 20150809, end: 20150809
  21. BACITRACIN. [Concomitant]
     Active Substance: BACITRACIN
     Indication: INFECTION PROPHYLAXIS
     Dosage: UNK, QD
     Route: 061
     Dates: start: 20150902
  22. METOLAZONE. [Concomitant]
     Active Substance: METOLAZONE
     Indication: FLUID OVERLOAD
     Dosage: 2.5 MG, QD
     Route: 048
     Dates: start: 20150909, end: 20150911
  23. PREDNISONE. [Suspect]
     Active Substance: PREDNISONE
     Dosage: 100 MG, UNK
     Route: 048
     Dates: start: 20151207, end: 201512
  24. PREDNISONE. [Suspect]
     Active Substance: PREDNISONE
     Dosage: 100 MG, UNK
     Route: 048
     Dates: start: 20160116, end: 20160119
  25. PREDNISONE. [Suspect]
     Active Substance: PREDNISONE
     Dosage: 100 MG, UNK
     Route: 048
     Dates: start: 20160307, end: 201603
  26. ALLOPURINOL. [Concomitant]
     Active Substance: ALLOPURINOL
     Dosage: 200 MG, QD
     Route: 048
     Dates: start: 20150730
  27. ONDANSETRON [Concomitant]
     Active Substance: ONDANSETRON
     Indication: NAUSEA
     Dosage: 8 UNK, UNK
     Route: 048
     Dates: start: 20150812
  28. FLUTICASONE [Concomitant]
     Active Substance: FLUTICASONE\FLUTICASONE PROPIONATE
     Indication: PROPHYLAXIS
     Dosage: UNK, QD
     Route: 055
     Dates: start: 20050101
  29. AZTREONAM. [Concomitant]
     Active Substance: AZTREONAM
     Indication: FEBRILE NEUTROPENIA
     Dosage: 1 G, BID
     Route: 042
     Dates: start: 20150823, end: 20150825
  30. VELCADE [Suspect]
     Active Substance: BORTEZOMIB
     Indication: PLASMA CELL MYELOMA
     Dosage: 2.8 MG, UNK
     Route: 058
     Dates: start: 20150730, end: 20150831
  31. VANCOMYCIN [Concomitant]
     Active Substance: VANCOMYCIN
     Indication: CLOSTRIDIUM DIFFICILE INFECTION
     Dosage: 125 MG, QID
     Route: 048
     Dates: start: 20150807, end: 20150814
  32. WARFARIN [Concomitant]
     Active Substance: WARFARIN
     Indication: CARDIAC VALVE PROSTHESIS USER
     Dosage: 2.5 MG, 3/WEEK
     Route: 048
     Dates: start: 2011, end: 20150808
  33. POTASSIUM CHLORIDE. [Concomitant]
     Active Substance: POTASSIUM CHLORIDE
     Dosage: 40 MG, QD
     Route: 048
     Dates: start: 20150822, end: 20150826
  34. DOXYCYCLINE. [Concomitant]
     Active Substance: DOXYCYCLINE
     Indication: CLOSTRIDIUM DIFFICILE INFECTION
     Dosage: 100 MG, BID
     Route: 048
     Dates: start: 20150811, end: 20150821
  35. GABAPENTIN. [Concomitant]
     Active Substance: GABAPENTIN
     Indication: PERIPHERAL SENSORY NEUROPATHY
     Dosage: 300 MG, BID
     Route: 048
     Dates: start: 20140201
  36. MAGNESIUM SULFATE. [Concomitant]
     Active Substance: MAGNESIUM SULFATE
     Indication: HYPOMAGNESAEMIA
     Dosage: 4 G, UNK
     Route: 042
     Dates: start: 20150826
  37. METFORMIN [Concomitant]
     Active Substance: METFORMIN HYDROCHLORIDE
     Indication: TYPE 2 DIABETES MELLITUS
     Dosage: 500 MG, BID
     Route: 048
     Dates: start: 1999
  38. PREDNISONE. [Suspect]
     Active Substance: PREDNISONE
     Dosage: 100 MG, UNK
     Route: 048
     Dates: start: 20151022, end: 20151025
  39. MELPHALAN [Suspect]
     Active Substance: MELPHALAN
     Indication: PLASMA CELL MYELOMA
     Dosage: 20 MG, QD
     Route: 048
     Dates: start: 20150730, end: 20150802
  40. LORATADINE. [Concomitant]
     Active Substance: LORATADINE
     Indication: ALLERGY PROPHYLAXIS
     Dosage: 10 MG, QD
     Route: 048
     Dates: start: 20150807
  41. FUROSEMIDE. [Concomitant]
     Active Substance: FUROSEMIDE
     Indication: FLUID OVERLOAD
     Dosage: 40 MG, UNK
     Route: 048
     Dates: start: 20150901
  42. MELPHALAN [Suspect]
     Active Substance: MELPHALAN
     Dosage: 10 MG, UNK
     Route: 048
     Dates: start: 20160114, end: 20160117
  43. FELODIPINE. [Concomitant]
     Active Substance: FELODIPINE
     Indication: HYPERTENSION
     Dosage: 5 MG, QD
     Route: 065
     Dates: start: 20110101
  44. FILGRASTIM [Concomitant]
     Active Substance: FILGRASTIM
     Indication: WHITE BLOOD CELL COUNT DECREASED
     Dosage: 480 ?G, QD
     Route: 058
     Dates: start: 20150814, end: 20150816
  45. ACYCLOVIR                          /00587301/ [Concomitant]
     Active Substance: ACYCLOVIR
     Indication: ANTIVIRAL PROPHYLAXIS
     Dosage: 400 MG, BID
     Route: 048
     Dates: start: 20150811, end: 20150827
  46. PANTOPRAZOLE [Concomitant]
     Active Substance: PANTOPRAZOLE SODIUM
     Indication: GASTROOESOPHAGEAL REFLUX DISEASE
     Dosage: 40 MG, QD
     Route: 048
     Dates: start: 20110101
  47. MONTELUKAST ALTER [Concomitant]
     Indication: ALLERGY PROPHYLAXIS
     Dosage: 10 MG, QD
     Route: 048
     Dates: start: 20150807
  48. PREDNISONE. [Suspect]
     Active Substance: PREDNISONE
     Indication: PLASMA CELL MYELOMA
     Dosage: 120 MG, QD
     Route: 048
     Dates: start: 20150730, end: 20150802
  49. MELPHALAN [Suspect]
     Active Substance: MELPHALAN
     Dosage: 14 MG, UNK
     Route: 048
     Dates: start: 20150910, end: 20150913
  50. MELPHALAN [Suspect]
     Active Substance: MELPHALAN
     Dosage: 10 MG, UNK
     Route: 048
     Dates: start: 20151022, end: 20151025
  51. ALLOPURINOL. [Concomitant]
     Active Substance: ALLOPURINOL
     Indication: PROPHYLAXIS
     Dosage: 300 MG, BID
     Route: 048
  52. NEURONTIN [Concomitant]
     Active Substance: GABAPENTIN
     Dosage: 300 MG, BID
     Route: 048
  53. ATORVASTATIN [Concomitant]
     Active Substance: ATORVASTATIN
     Indication: HYPERLIPIDAEMIA
     Dosage: 80 MG, QD
     Route: 048
     Dates: start: 2005
  54. ENOXAPARIN [Concomitant]
     Active Substance: ENOXAPARIN
     Dosage: 60 MG, BID
     Route: 058
     Dates: start: 20150810, end: 20150826
  55. FLAGYL [Concomitant]
     Active Substance: METRONIDAZOLE\METRONIDAZOLE HYDROCHLORIDE
     Indication: CLOSTRIDIUM DIFFICILE INFECTION
     Dosage: 500 MG, TID
     Route: 048
     Dates: start: 20150813, end: 20150827
  56. MELPHALAN [Suspect]
     Active Substance: MELPHALAN
     Dosage: 10 MG, UNK
     Route: 048
     Dates: start: 20151203, end: 20151206
  57. MELPHALAN [Suspect]
     Active Substance: MELPHALAN
     Dosage: 10 MG, UNK
     Route: 048
     Dates: start: 20160503, end: 20160606
  58. POTASSIUM CHLORIDE. [Concomitant]
     Active Substance: POTASSIUM CHLORIDE
     Indication: HYPOKALAEMIA
     Dosage: UNK, QD
     Route: 048
     Dates: start: 20150807, end: 20150809
  59. ONDANSETRON [Concomitant]
     Active Substance: ONDANSETRON
     Dosage: 4 MG, UNK
     Route: 048
     Dates: start: 20150813
  60. SODIUM CHLORIDE. [Concomitant]
     Active Substance: SODIUM CHLORIDE
     Indication: SUPPORTIVE CARE
     Dosage: 500 ML, UNK
     Route: 042
     Dates: start: 20150807, end: 20150807
  61. MAGNESIUM SULFATE. [Concomitant]
     Active Substance: MAGNESIUM SULFATE
     Dosage: 2 MG, UNK
     Route: 048
     Dates: start: 20150808, end: 20150808
  62. PROCHLORPERAZINE. [Concomitant]
     Active Substance: PROCHLORPERAZINE
     Indication: PROPHYLAXIS OF NAUSEA AND VOMITING
     Dosage: 10 MG, UNK
     Route: 042
     Dates: start: 20150826

REACTIONS (16)
  - White blood cell count decreased [Recovering/Resolving]
  - Thrombocytopenia [Recovering/Resolving]
  - Clostridium difficile infection [Recovered/Resolved]
  - Peripheral sensory neuropathy [Unknown]
  - Febrile neutropenia [Recovered/Resolved]
  - Nausea [Unknown]
  - Rectal haemorrhage [Unknown]
  - Fatigue [Unknown]
  - Anaemia [Unknown]
  - Dizziness [Unknown]
  - Hypoalbuminaemia [Unknown]
  - Hypomagnesaemia [Recovered/Resolved]
  - Hypokalaemia [Recovered/Resolved]
  - Decreased appetite [Unknown]
  - Cardiac failure [Unknown]
  - Weight decreased [Recovering/Resolving]

NARRATIVE: CASE EVENT DATE: 20150730
